FAERS Safety Report 5629603-3 (Version None)
Quarter: 2008Q1

REPORT INFORMATION
  Report Type: 
  Country: None (occurrence: None)
  Receive Date: 20080214
  Receipt Date: 20080204
  Transmission Date: 20080703
  Serious: Yes (Death)
  Sender: FDA-Public Use
  Company Number: 2008-01212

PATIENT
  Age: 64 Year
  Sex: Female

DRUGS (4)
  1. DIPHENHYDRAMINE HCL [Suspect]
  2. FAMOTIDINE [Suspect]
  3. QUETIAPINE FUMARATE [Suspect]
  4. VENLAFAXINE HCL [Suspect]

REACTIONS (1)
  - DEATH [None]
